FAERS Safety Report 20567684 (Version 11)
Quarter: 2024Q4

REPORT INFORMATION
  Report Type: Report from Study
  Country: GB (occurrence: GB)
  Receive Date: 20220308
  Receipt Date: 20241028
  Transmission Date: 20250115
  Serious: Yes (Other)
  Sender: ROCHE
  Company Number: GB-ROCHE-3039385

PATIENT
  Age: 74 Year
  Sex: Female

DRUGS (12)
  1. TOCILIZUMAB [Suspect]
     Active Substance: TOCILIZUMAB
     Indication: Rheumatoid arthritis
     Route: 058
     Dates: start: 20170208
  2. TOCILIZUMAB [Suspect]
     Active Substance: TOCILIZUMAB
     Route: 058
     Dates: start: 2019
  3. TOCILIZUMAB [Suspect]
     Active Substance: TOCILIZUMAB
     Route: 058
  4. TOCILIZUMAB [Suspect]
     Active Substance: TOCILIZUMAB
     Route: 058
  5. BISOPROLOL [Concomitant]
     Active Substance: BISOPROLOL\BISOPROLOL FUMARATE
  6. LANSOPRAZOLE [Concomitant]
     Active Substance: LANSOPRAZOLE
  7. ZOPICLONE [Concomitant]
     Active Substance: ZOPICLONE
  8. TRAMADOL [Concomitant]
     Active Substance: TRAMADOL
  9. LISINOPRIL [Concomitant]
     Active Substance: LISINOPRIL
     Dosage: 10MG AND SAME ONE 20 MG - ADDS UP TO 30 MG A DAY
  10. ATORVASTATIN [Concomitant]
     Active Substance: ATORVASTATIN
  11. CALCIUM [Concomitant]
     Active Substance: CALCIUM
  12. ACETAMINOPHEN [Concomitant]
     Active Substance: ACETAMINOPHEN

REACTIONS (15)
  - Malaise [Unknown]
  - Contusion [Unknown]
  - Ulcer haemorrhage [Unknown]
  - Rheumatoid arthritis [Unknown]
  - Feeding disorder [Unknown]
  - Localised infection [Unknown]
  - Tooth infection [Unknown]
  - Condition aggravated [Unknown]
  - Nail bed bleeding [Unknown]
  - Toothache [Unknown]
  - Off label use [Unknown]
  - Anaemia [Unknown]
  - Ill-defined disorder [Unknown]
  - Device malfunction [Unknown]
  - Product complaint [Unknown]
